FAERS Safety Report 6591627-X (Version None)
Quarter: 2010Q1

REPORT INFORMATION
  Report Type: 
  Country: None (occurrence: None)
  Receive Date: 20100221
  Receipt Date: 20090810
  Transmission Date: 20100710
  Serious: No
  Sender: FDA-Public Use
  Company Number: US-ALLERGAN-0911102US

PATIENT
  Sex: Female

DRUGS (1)
  1. BOTOX COSMETIC [Suspect]
     Indication: SKIN WRINKLING
     Dosage: UNK
     Dates: start: 20090731, end: 20090731

REACTIONS (4)
  - EYE IRRITATION [None]
  - EYE PRURITUS [None]
  - EYELID OEDEMA [None]
  - OCULAR HYPERAEMIA [None]
